FAERS Safety Report 8525860-4 (Version None)
Quarter: 2012Q3

REPORT INFORMATION
  Report Type: 
  Country: None (occurrence: None)
  Receive Date: 20120720
  Receipt Date: 20120712
  Transmission Date: 20120928
  Serious: Yes (Hospitalization, Other)
  Sender: FDA-Public Use
  Company Number: US-ELI_LILLY_AND_COMPANY-US201111000282

PATIENT
  Sex: Female

DRUGS (2)
  1. FORTEO [Suspect]
     Indication: OSTEOPOROSIS
     Dosage: UNK
     Dates: start: 20110801
  2. PREDNISONE [Concomitant]

REACTIONS (7)
  - DYSPNOEA [None]
  - MUSCULOSKELETAL STIFFNESS [None]
  - SPINAL FRACTURE [None]
  - COMPRESSION FRACTURE [None]
  - BONE DENSITY INCREASED [None]
  - LUNG DISORDER [None]
  - ABASIA [None]
